FAERS Safety Report 5404435-X (Version None)
Quarter: 2007Q3

REPORT INFORMATION
  Report Type: 
  Country: None (occurrence: None)
  Receive Date: 20070711
  Receipt Date: 20070503
  Transmission Date: 20080115
  Serious: Yes (Hospitalization)
  Sender: FDA-Public Use
  Company Number: 2007SP001638

PATIENT
  Age: 66 Year
  Sex: Male

DRUGS (16)
  1. XOPENEX [Suspect]
     Indication: BRONCHITIS
     Dosage: 1.25 MG3ML;TID;INHALATION
     Route: 055
     Dates: start: 20070301
  2. XOPENEX [Suspect]
     Indication: CHRONIC OBSTRUCTIVE PULMONARY DISEASE
     Dosage: 1.25 MG3ML;TID;INHALATION
     Route: 055
     Dates: start: 20070301
  3. XOPENEX [Suspect]
     Indication: EMPHYSEMA
     Dosage: 1.25 MG3ML;TID;INHALATION
     Route: 055
     Dates: start: 20070301
  4. XOPENEX HFA [Suspect]
     Indication: BRONCHITIS
     Dosage: 90 UG;PRN;INHALATION
     Route: 055
     Dates: start: 20070205
  5. XOPENEX HFA [Suspect]
     Indication: CHRONIC OBSTRUCTIVE PULMONARY DISEASE
     Dosage: 90 UG;PRN;INHALATION
     Route: 055
     Dates: start: 20070205
  6. XOPENEX HFA [Suspect]
     Indication: EMPHYSEMA
     Dosage: 90 UG;PRN;INHALATION
     Route: 055
     Dates: start: 20070205
  7. IPRATROPIUM BROMIDE [Suspect]
     Indication: BRONCHITIS
     Dosage: 2 PCT;TID;INHALATION
     Route: 055
     Dates: start: 20070301
  8. IPRATROPIUM BROMIDE [Suspect]
     Indication: CHRONIC OBSTRUCTIVE PULMONARY DISEASE
     Dosage: 2 PCT;TID;INHALATION
     Route: 055
     Dates: start: 20070301
  9. IPRATROPIUM BROMIDE [Suspect]
     Indication: EMPHYSEMA
     Dosage: 2 PCT;TID;INHALATION
     Route: 055
     Dates: start: 20070301
  10. DIGOXIN [Concomitant]
  11. ALPRAZOLAM [Concomitant]
  12. DILTIAZEM [Concomitant]
  13. METOPROLOL SUCCINATE [Concomitant]
  14. ASPIRIN [Concomitant]
  15. SINGULAIR [Concomitant]
  16. ASMANEX TWISTHALER [Concomitant]

REACTIONS (4)
  - BREATH ODOUR [None]
  - DYSGEUSIA [None]
  - HEART RATE INCREASED [None]
  - VIRAL INFECTION [None]
